FAERS Safety Report 5098381-1 (Version None)
Quarter: 2006Q3

REPORT INFORMATION
  Report Type: 
  Country: None (occurrence: None)
  Receive Date: 20060906
  Receipt Date: 20050729
  Transmission Date: 20061208
  Serious: No
  Sender: FDA-Public Use
  Company Number: US-GLAXOSMITHKLINE-A0568522A

PATIENT
  Age: 55 Year
  Sex: Female

DRUGS (5)
  1. REQUIP [Suspect]
     Indication: RESTLESS LEGS SYNDROME
     Dosage: 1MG PER DAY
     Route: 048
     Dates: start: 20050101, end: 20060101
  2. PAXIL [Suspect]
     Indication: DRUG USE FOR UNKNOWN INDICATION
  3. TOPAMAX [Concomitant]
  4. ADVAIR DISKUS 100/50 [Concomitant]
  5. LYRICA [Concomitant]

REACTIONS (2)
  - DIZZINESS [None]
  - INSOMNIA [None]
